FAERS Safety Report 7673218-2 (Version None)
Quarter: 2011Q3

REPORT INFORMATION
  Report Type: 
  Country: None (occurrence: None)
  Receive Date: 20110810
  Receipt Date: 20080407
  Transmission Date: 20111222
  Serious: No
  Sender: FDA-Public Use
  Company Number: 2008BI009394

PATIENT
  Sex: Female

DRUGS (6)
  1. TYSABRI [Suspect]
     Route: 042
     Dates: start: 20050217, end: 20050217
  2. TYSABRI [Suspect]
     Route: 042
     Dates: start: 20090615
  3. TYLENOL-500 [Concomitant]
     Indication: PREMEDICATION
  4. BENADRYL [Concomitant]
     Indication: PREMEDICATION
  5. TYSABRI [Suspect]
     Indication: MULTIPLE SCLEROSIS
     Route: 042
     Dates: start: 20070514, end: 20071112
  6. DIAZEPAM [Concomitant]
     Indication: PREMEDICATION

REACTIONS (8)
  - DEPRESSION [None]
  - PAIN OF SKIN [None]
  - PAIN IN EXTREMITY [None]
  - PAIN [None]
  - MYALGIA [None]
  - ARTHRALGIA [None]
  - NEURALGIA [None]
  - SKIN WARM [None]
